FAERS Safety Report 8910866 (Version 1)
Quarter: 2012Q4

REPORT INFORMATION
  Report Type: 
  Country: SK (occurrence: SK)
  Receive Date: 20121115
  Receipt Date: 20121115
  Transmission Date: 20130627
  Serious: Yes (Death)
  Sender: FDA-Public Use
  Company Number: SK-ELI_LILLY_AND_COMPANY-SK201211002911

PATIENT
  Age: 72 Year
  Sex: Female

DRUGS (11)
  1. FORSTEO [Suspect]
     Indication: OSTEOPOROSIS POSTMENOPAUSAL
     Dosage: 20 ug, qd
     Route: 058
     Dates: start: 20111031
  2. WARFARIN [Concomitant]
     Indication: EMBOLISM
  3. THEOPHYLLIN [Concomitant]
     Indication: CHRONIC OBSTRUCTIVE PULMONARY DISEASE
  4. RAMIPRIL [Concomitant]
  5. DIGOXIN [Concomitant]
  6. ALLOPURINOL [Concomitant]
  7. NAFTIDROFURYL [Concomitant]
  8. ATORVASTATIN [Concomitant]
  9. SPIRONOLACTON [Concomitant]
  10. TRIMETAZIDINE [Concomitant]
  11. INSULIN [Concomitant]
     Indication: DIABETES MELLITUS

REACTIONS (1)
  - Cardiac failure [Fatal]
